FAERS Safety Report 9347962 (Version 1)
Quarter: 2013Q2

REPORT INFORMATION
  Report Type: Spontaneous
  Country: US (occurrence: None)
  Receive Date: 20130612
  Receipt Date: 20130612
  Transmission Date: 20140414
  Serious: Yes (Hospitalization)
  Sender: FDA-Public Use
  Company Number: None

PATIENT
  Age: 61 Year
  Sex: Male
  Weight: 81 kg

DRUGS (9)
  1. DOCETAXEL [Suspect]
     Indication: PROSTATE CANCER METASTATIC
     Dosage: D1 Q21
     Route: 042
     Dates: start: 20130529
  2. RAD001 [Suspect]
     Indication: PROSTATE CANCER METASTATIC
     Route: 048
     Dates: start: 20130530, end: 20130607
  3. LIPITOR [Concomitant]
  4. NORVASC [Concomitant]
  5. NASONSX [Concomitant]
  6. IRON [Concomitant]
  7. ASPIRIN [Concomitant]
  8. ZYRTEC [Concomitant]
  9. ZOMETA [Concomitant]

REACTIONS (5)
  - Diarrhoea [None]
  - Asthenia [None]
  - Pyrexia [None]
  - Neutropenia [None]
  - Dehydration [None]
